FAERS Safety Report 5241755-6 (Version None)
Quarter: 2007Q1

REPORT INFORMATION
  Report Type: 
  Country: None (occurrence: None)
  Receive Date: 20070220
  Receipt Date: 20070214
  Transmission Date: 20070707
  Serious: Yes (Hospitalization, Other)
  Sender: FDA-Public Use
  Company Number: JP-ELI_LILLY_AND_COMPANY-JP200701006138

PATIENT
  Age: 77 Year
  Weight: 66.5 kg

DRUGS (9)
  1. GEMZAR [Suspect]
     Indication: LUNG ADENOCARCINOMA STAGE IV
     Dosage: 1000 MG, OTHER
     Route: 042
     Dates: start: 20061220, end: 20070105
  2. NAVELBINE [Concomitant]
     Indication: LUNG ADENOCARCINOMA STAGE IV
     Dosage: 40 MG, OTHER
     Route: 042
     Dates: start: 20061220, end: 20070105
  3. DIOVAN [Concomitant]
     Indication: HYPERTENSION
     Dosage: 80 MG, DAILY (1/D)
     Route: 048
  4. NORVASC [Concomitant]
     Indication: HYPERTENSION
     Dosage: 5 MG, DAILY (1/D)
     Route: 048
  5. LIPITOR [Concomitant]
     Indication: HYPERLIPIDAEMIA
     Dosage: 5 MG, DAILY (1/D)
     Route: 048
  6. MUCODYNE [Concomitant]
     Indication: COUGH
     Dosage: 500 MG, 3/D
     Route: 048
  7. SINGULAIR [Concomitant]
     Indication: ASTHMA
     Dosage: 10 MG, DAILY (1/D)
     Route: 048
  8. LENDORMIN [Concomitant]
     Indication: INSOMNIA
     Dosage: 0.125 MG, DAILY (1/D)
     Route: 048
  9. HOKUNALIN [Concomitant]
     Indication: ASTHMA
     Dosage: 2 MG, UNK
     Route: 062

REACTIONS (5)
  - CONSTIPATION [None]
  - DEEP VEIN THROMBOSIS [None]
  - MALAISE [None]
  - PULMONARY EMBOLISM [None]
  - WHITE BLOOD CELL COUNT DECREASED [None]
